FAERS Safety Report 20705853 (Version 1)
Quarter: 2022Q2

REPORT INFORMATION
  Report Type: Report from Study
  Country: US (occurrence: US)
  Receive Date: 20220413
  Receipt Date: 20220413
  Transmission Date: 20220720
  Serious: Yes (Other)
  Sender: FDA-Public Use
  Company Number: US-UCBSA-2022019930

PATIENT
  Age: 22 Year
  Sex: Male

DRUGS (5)
  1. LEVETIRACETAM [Suspect]
     Active Substance: LEVETIRACETAM
     Indication: Seizure
     Dosage: UNK DOSE
  2. LEVETIRACETAM [Suspect]
     Active Substance: LEVETIRACETAM
     Dosage: 1000 MILLIGRAM, 2X/DAY (BID)
     Dates: start: 20190117, end: 2020
  3. VIMPAT [Suspect]
     Active Substance: LACOSAMIDE
     Indication: Seizure
     Dosage: 200 MILLIGRAM, 2X/DAY (BID)
     Route: 048
  4. DILANTIN [Concomitant]
     Active Substance: PHENYTOIN
     Indication: Seizure
  5. AMBIEN [Concomitant]
     Active Substance: ZOLPIDEM TARTRATE
     Indication: Sleep disorder

REACTIONS (9)
  - Seizure [Recovered/Resolved]
  - Behaviour disorder [Unknown]
  - Sleep deficit [Recovering/Resolving]
  - Irritability [Recovered/Resolved]
  - Anger [Recovered/Resolved]
  - Insomnia [Unknown]
  - Snoring [Unknown]
  - Seasonal allergy [Unknown]
  - Product dose omission in error [Unknown]

NARRATIVE: CASE EVENT DATE: 20180201
